FAERS Safety Report 15297931 (Version 14)
Quarter: 2019Q3

REPORT INFORMATION
  Report Type: Spontaneous
  Country: CA (occurrence: CA)
  Receive Date: 20180820
  Receipt Date: 20190830
  Transmission Date: 20191004
  Serious: Yes (Other)
  Sender: FDA-Public Use
  Company Number: CA-CELLTRION INC.-2018CA021809

PATIENT

DRUGS (20)
  1. INFLECTRA [Suspect]
     Active Substance: INFLIXIMAB-DYYB
     Dosage: 10 MG/KG, EVERY 5 WEEKS (MAINTENANCE)
     Route: 042
     Dates: start: 20190219, end: 20190219
  2. INFLECTRA [Suspect]
     Active Substance: INFLIXIMAB-DYYB
     Dosage: 5 MG/KG, AT 0, 2, 6 WEEKS (INDUCTION)
     Route: 042
     Dates: start: 20181101, end: 20181101
  3. INFLECTRA [Suspect]
     Active Substance: INFLIXIMAB-DYYB
     Dosage: 10 MG/KG EVERY 5 WEEKS (MAINTENANCE)
     Route: 042
     Dates: start: 20190326, end: 20190326
  4. INFLECTRA [Suspect]
     Active Substance: INFLIXIMAB-DYYB
     Dosage: 10 MG/KG, EVERY 4 WEEKS
     Route: 042
     Dates: start: 20190708, end: 201908
  5. CORTISONE [Concomitant]
     Active Substance: CORTISONE
     Dosage: UNK
     Route: 065
     Dates: start: 20190814
  6. METHOTREXATE. [Concomitant]
     Active Substance: METHOTREXATE
     Indication: COLITIS ULCERATIVE
     Dosage: UNK
     Dates: end: 20190811
  7. CORTISONE [Concomitant]
     Active Substance: CORTISONE
     Indication: COLITIS ULCERATIVE
     Dosage: UNK
     Dates: start: 201703
  8. PREDNISONE. [Concomitant]
     Active Substance: PREDNISONE
     Dosage: 40 MG, UNK
     Route: 065
     Dates: start: 201703
  9. INFLECTRA [Suspect]
     Active Substance: INFLIXIMAB-DYYB
     Dosage: 10 MG/KG, EVERY 4 WEEKS (MAINTENANCE)
     Route: 042
     Dates: start: 20190604, end: 20190604
  10. INFLECTRA [Suspect]
     Active Substance: INFLIXIMAB-DYYB
     Dosage: 10 MG/KG, EVERY 4 WEEKS
     Route: 042
     Dates: start: 20190808, end: 201908
  11. CALCIUM [Concomitant]
     Active Substance: CALCIUM
     Dosage: UNK
     Route: 065
  12. VITAMIN D [Concomitant]
     Active Substance: VITAMIN D NOS
     Dosage: UNK
     Route: 065
  13. SALOFALK [Concomitant]
     Dosage: UNK
     Route: 065
  14. INFLECTRA [Suspect]
     Active Substance: INFLIXIMAB-DYYB
     Indication: COLITIS ULCERATIVE
     Dosage: 10 MG/KG, AT 0, 2, 6 WEEKS (INDUCTION)
     Route: 042
     Dates: start: 20180725, end: 20180725
  15. INFLECTRA [Suspect]
     Active Substance: INFLIXIMAB-DYYB
     Dosage: 10 MG/KG, AT 0, 2, 6 WEEKS (INDUCTION)
     Route: 042
     Dates: start: 20180809, end: 20180809
  16. INFLECTRA [Suspect]
     Active Substance: INFLIXIMAB-DYYB
     Dosage: 10 MG/KG, AT 0, 2, 6 WEEKS (INDUCTION)
     Route: 042
     Dates: start: 20180906, end: 20180906
  17. VITAMIN A [Concomitant]
     Active Substance: VITAMIN A
     Dosage: UNK
     Route: 065
  18. INFLECTRA [Suspect]
     Active Substance: INFLIXIMAB-DYYB
     Dosage: 7.5 MG/KG (MAINTENANCE)
     Route: 042
     Dates: start: 20181211, end: 20181211
  19. INFLECTRA [Suspect]
     Active Substance: INFLIXIMAB-DYYB
     Dosage: 10 MG/KG, EVERY 5 WEEKS (MAINTENANCE)
     Route: 042
     Dates: start: 20190115
  20. INFLECTRA [Suspect]
     Active Substance: INFLIXIMAB-DYYB
     Dosage: 10 MG/KG, EVERY 5 WEEKS (MAINTENANCE)
     Route: 042
     Dates: start: 20190430, end: 20190430

REACTIONS (8)
  - Condition aggravated [Unknown]
  - Treatment failure [Unknown]
  - Joint injury [Unknown]
  - Thrombophlebitis [Recovered/Resolved]
  - Therapeutic product effect incomplete [Unknown]
  - Product use issue [Unknown]
  - Musculoskeletal chest pain [Recovering/Resolving]
  - Off label use [Unknown]

NARRATIVE: CASE EVENT DATE: 2018
